FAERS Safety Report 20931513 (Version 1)
Quarter: 2022Q2

REPORT INFORMATION
  Report Type: Spontaneous
  Country: GR (occurrence: GR)
  Receive Date: 20220608
  Receipt Date: 20220608
  Transmission Date: 20220720
  Serious: Yes (Other)
  Sender: FDA-Public Use
  Company Number: GR-BAYER-2022P003520

PATIENT
  Age: 66 Year
  Sex: Male

DRUGS (6)
  1. SORAFENIB [Suspect]
     Active Substance: SORAFENIB
     Indication: Cirrhosis alcoholic
  2. SORAFENIB [Suspect]
     Active Substance: SORAFENIB
     Indication: Hepatocellular carcinoma
  3. SORAFENIB [Suspect]
     Active Substance: SORAFENIB
     Indication: Portal vein thrombosis
  4. UNSPECIFIED INGREDIENT [Suspect]
     Active Substance: UNSPECIFIED INGREDIENT
     Indication: Cirrhosis alcoholic
  5. UNSPECIFIED INGREDIENT [Suspect]
     Active Substance: UNSPECIFIED INGREDIENT
     Indication: Hepatocellular carcinoma
  6. UNSPECIFIED INGREDIENT [Suspect]
     Active Substance: UNSPECIFIED INGREDIENT
     Indication: Portal vein thrombosis

REACTIONS (6)
  - Haematoma [None]
  - Coagulopathy [None]
  - Haemorrhage [None]
  - Pain in extremity [None]
  - Oedema peripheral [None]
  - Anaemia [None]
